FAERS Safety Report 6871215-8 (Version None)
Quarter: 2010Q3

REPORT INFORMATION
  Report Type: 
  Country: None (occurrence: None)
  Receive Date: 20100723
  Receipt Date: 20100713
  Transmission Date: 20110219
  Serious: Yes (Hospitalization, Other)
  Sender: FDA-Public Use
  Company Number: US-PFIZER INC-2010059676

PATIENT
  Sex: Female
  Weight: 54.87 kg

DRUGS (4)
  1. CHANTIX [Suspect]
     Indication: SMOKING CESSATION THERAPY
     Dosage: 0.5 MG, 1X/DAY
     Route: 048
     Dates: start: 20100501, end: 20100501
  2. CHANTIX [Suspect]
     Dosage: UNK
     Route: 048
     Dates: start: 20100501, end: 20100511
  3. TYLENOL [Concomitant]
     Indication: MUSCULOSKELETAL PAIN
     Dosage: UNK
     Route: 048
     Dates: start: 20090501
  4. VICODIN [Concomitant]
     Indication: MUSCULOSKELETAL PAIN
     Dosage: UNK
     Route: 048

REACTIONS (6)
  - ARTHRITIS [None]
  - COLLAPSE OF LUNG [None]
  - FUNGAL INFECTION [None]
  - RASH [None]
  - SKIN HYPERTROPHY [None]
  - URTICARIA [None]
